FAERS Safety Report 6652840-6 (Version None)
Quarter: 2010Q1

REPORT INFORMATION
  Report Type: 
  Country: None (occurrence: None)
  Receive Date: 20100325
  Receipt Date: 20100325
  Transmission Date: 20100710
  Serious: Yes (Disabling, Other)
  Sender: FDA-Public Use
  Company Number: None

PATIENT
  Age: 47 Year
  Sex: Female
  Weight: 77.1115 kg

DRUGS (2)
  1. PAXIL [Suspect]
     Indication: ANXIETY
     Dosage: 80MG 1X DLY PO
     Route: 048
  2. PAXIL [Suspect]
     Indication: DEPRESSION
     Dosage: 80MG 1X DLY PO
     Route: 048

REACTIONS (1)
  - TYPE 2 DIABETES MELLITUS [None]
